FAERS Safety Report 24696647 (Version 5)
Quarter: 2025Q1

REPORT INFORMATION
  Report Type: Spontaneous
  Country: US (occurrence: US)
  Receive Date: 20241204
  Receipt Date: 20250204
  Transmission Date: 20250408
  Serious: Yes (Other)
  Sender: ROCHE
  Company Number: US-ROCHE-10000148505

PATIENT
  Sex: Female

DRUGS (1)
  1. VABYSMO [Suspect]
     Active Substance: FARICIMAB-SVOA
     Indication: Age-related macular degeneration
     Route: 065

REACTIONS (1)
  - Bacterial endophthalmitis [Unknown]
